FAERS Safety Report 8896426 (Version 1)
Quarter: 2012Q4

REPORT INFORMATION
  Report Type: Spontaneous
  Country: US (occurrence: None)
  Receive Date: 20121107
  Receipt Date: 20121107
  Transmission Date: 20130627
  Serious: Yes (Other)
  Sender: FDA-Public Use
  Company Number: None

PATIENT
  Age: 3 Year
  Sex: Female
  Weight: 14.97 kg

DRUGS (2)
  1. PREVACID SOLUTAB [Suspect]
     Indication: GASTROESOPHAGEAL REFLUX
     Dosage: Prevacid Solutab 15mg
     Dates: start: 20121106
  2. PREVACID SOLUTAB [Suspect]
     Indication: OTITIS MEDIA
     Dosage: Prevacid Solutab 15mg
     Dates: start: 20121106

REACTIONS (1)
  - Treatment failure [None]
